FAERS Safety Report 10213413 (Version 1)
Quarter: 2014Q2

REPORT INFORMATION
  Report Type: Spontaneous
  Country: US (occurrence: None)
  Receive Date: 20140530
  Receipt Date: 20140530
  Transmission Date: 20141212
  Serious: No
  Sender: FDA-Public Use
  Company Number: None

PATIENT
  Age: 67 Year
  Sex: Male
  Weight: 118.5 kg

DRUGS (1)
  1. VANCOMYCIN [Suspect]
     Indication: CELLULITIS STAPHYLOCOCCAL
     Dosage: 1000 MG, ONCE, IV
     Route: 042
     Dates: start: 20140521, end: 20140521

REACTIONS (3)
  - Erythema multiforme [None]
  - Flushing [None]
  - Red man syndrome [None]
